FAERS Safety Report 4699382-5 (Version None)
Quarter: 2005Q2

REPORT INFORMATION
  Report Type: 
  Country: None (occurrence: None)
  Receive Date: 20050622
  Receipt Date: 20050606
  Transmission Date: 20051028
  Serious: Yes (Death, Hospitalization)
  Sender: FDA-Public Use
  Company Number: 2005-BP-08443RO

PATIENT
  Age: 70 Year
  Sex: Female

DRUGS (4)
  1. LEUCOVORIN CALCIUM [Suspect]
     Indication: COLON CANCER
     Dosage: 75 MG/DAY PO
     Route: 048
     Dates: start: 20050408, end: 20050425
  2. UFT [Suspect]
     Indication: COLON CANCER
     Dosage: 4 CAPSULES/DAY PO
     Route: 048
     Dates: start: 20050408, end: 20050425
  3. AMLODIPINE BESYLATE [Concomitant]
  4. ISOSORBIDE DINITRATE [Concomitant]

REACTIONS (6)
  - DECREASED APPETITE [None]
  - DEHYDRATION [None]
  - DIARRHOEA [None]
  - TREATMENT NONCOMPLIANCE [None]
  - VOMITING [None]
  - WHITE BLOOD CELL COUNT DECREASED [None]
